FAERS Safety Report 22537633 (Version 1)
Quarter: 2023Q2

REPORT INFORMATION
  Report Type: Spontaneous
  Country: US (occurrence: US)
  Receive Date: 20230608
  Receipt Date: 20230608
  Transmission Date: 20230721
  Serious: No
  Sender: FDA-Public Use
  Company Number: US-PFIZER INC-202300213140

PATIENT
  Sex: Male
  Weight: 78.5 kg

DRUGS (1)
  1. RITUXIMAB [Suspect]
     Active Substance: RITUXIMAB
     Dosage: UNK (4 DOSES WITHOUT RESPONSE)
     Dates: start: 20191118

REACTIONS (1)
  - Drug ineffective [Unknown]
